FAERS Safety Report 10433681 (Version 1)
Quarter: 2014Q3

REPORT INFORMATION
  Report Type: Report from Study
  Country: CA (occurrence: CA)
  Receive Date: 20140905
  Receipt Date: 20140905
  Transmission Date: 20150326
  Serious: Yes (Death, Other)
  Sender: FDA-Public Use
  Company Number: PHHY2014CA111504

PATIENT
  Sex: Female

DRUGS (5)
  1. ACLASTA [Suspect]
     Active Substance: ZOLEDRONIC ACID
     Dosage: UNK, ONCE A YEAR
     Route: 042
     Dates: start: 20121115
  2. ACLASTA [Suspect]
     Active Substance: ZOLEDRONIC ACID
     Indication: OSTEOPOROSIS
     Dosage: UNK, ONCE A YEAR
     Route: 042
     Dates: start: 20090416
  3. ACLASTA [Suspect]
     Active Substance: ZOLEDRONIC ACID
     Dosage: UNK, ONCE A YEAR
     Route: 042
     Dates: start: 20110908
  4. ACLASTA [Suspect]
     Active Substance: ZOLEDRONIC ACID
     Dosage: UNK, ONCE A YEAR
     Route: 042
     Dates: start: 20100429
  5. ACLASTA [Suspect]
     Active Substance: ZOLEDRONIC ACID
     Dosage: UNK, ONCE A YEAR
     Route: 042
     Dates: start: 20131128, end: 20131128

REACTIONS (4)
  - Breast cancer metastatic [Fatal]
  - Dyspnoea [Unknown]
  - Delirium [Unknown]
  - Respiratory distress [Fatal]
